FAERS Safety Report 6534279-7 (Version None)
Quarter: 2009Q4

REPORT INFORMATION
  Report Type: 
  Country: None (occurrence: None)
  Receive Date: 20091214
  Receipt Date: 20090401
  Transmission Date: 20100525
  Serious: Yes (Other)
  Sender: FDA-Public Use
  Company Number: 566640

PATIENT
  Age: 49 Year
  Sex: Male
  Weight: 66.7 kg

DRUGS (8)
  1. PEGASYS [Suspect]
     Indication: HEPATITIS C
     Dosage: 180 UG 1 PER WEEK SUBCUTANEOUS
     Route: 058
     Dates: start: 20080313, end: 20090215
  2. COPEGUS [Suspect]
     Indication: HEPATITIS C
     Dosage: 600 MG 2 PER DAY ORAL
     Route: 048
     Dates: start: 20080313, end: 20090215
  3. NEUPOGEN [Concomitant]
  4. ALPRAZOLAM [Concomitant]
  5. NEURONTIN [Concomitant]
  6. CODEINE SUL TAB [Concomitant]
  7. TEMAZEPAM [Concomitant]
  8. HYDROCODONE BITARTRATE [Concomitant]

REACTIONS (9)
  - ABDOMINAL PAIN [None]
  - AMNESIA [None]
  - DENTAL CARIES [None]
  - HEPATITIS C [None]
  - MALAISE [None]
  - NEUTROPENIA [None]
  - ONYCHOCLASIS [None]
  - WEIGHT DECREASED [None]
  - WHITE BLOOD CELL COUNT DECREASED [None]
